FAERS Safety Report 6316336-3 (Version None)
Quarter: 2009Q3

REPORT INFORMATION
  Report Type: 
  Country: None (occurrence: None)
  Receive Date: 20090820
  Receipt Date: 20090813
  Transmission Date: 20100115
  Serious: Yes (Other)
  Sender: FDA-Public Use
  Company Number: A0801148A

PATIENT
  Sex: Male

DRUGS (2)
  1. AVANDIA [Suspect]
     Route: 065
     Dates: end: 20090514
  2. AVANDAMET [Suspect]
     Indication: BLOOD GLUCOSE
     Dosage: 1TAB TWICE PER DAY
     Route: 048

REACTIONS (4)
  - COLITIS [None]
  - DIARRHOEA [None]
  - FLATULENCE [None]
  - SKIN DISCOLOURATION [None]
